FAERS Safety Report 5156057-6 (Version None)
Quarter: 2006Q4

REPORT INFORMATION
  Report Type: 
  Country: None (occurrence: None)
  Receive Date: 20061122
  Receipt Date: 20051108
  Transmission Date: 20070319
  Serious: Yes (Other)
  Sender: FDA-Public Use
  Company Number: FR-ELI_LILLY_AND_COMPANY-FR_051107459

PATIENT
  Age: 76 Year
  Sex: Female

DRUGS (6)
  1. FORTEO [Suspect]
     Indication: OSTEOPOROTIC FRACTURE
     Dosage: 20 UG, DAILY (1/D)
     Route: 058
     Dates: start: 20050525, end: 20051201
  2. FORTEO [Suspect]
     Dosage: 20 UG, DAILY (1/D)
     Route: 058
     Dates: start: 20061001
  3. AMLOR [Concomitant]
     Indication: HYPERTENSION
     Dosage: 1 UNK, EACH MORNING
     Route: 048
     Dates: start: 19951108
  4. CYCLO 3 [Concomitant]
     Dosage: 1 UNK, 2/D
     Route: 048
     Dates: start: 19951108
  5. DUSPATALIN [Concomitant]
     Dosage: 3 UNK, DAILY (1/D)
     Route: 048
     Dates: start: 19951108
  6. ACETAMINOPHEN W/ PROPOXYPHENE HCL [Concomitant]
     Indication: PAIN
     Dosage: 6 UNK, DAILY (1/D)
     Route: 048
     Dates: start: 20041108

REACTIONS (2)
  - GAMMA-GLUTAMYLTRANSFERASE INCREASED [None]
  - HEPATIC FIBROSIS [None]
